FAERS Safety Report 9831077 (Version 1)
Quarter: 2014Q1

REPORT INFORMATION
  Report Type: Report from Study
  Country: CL (occurrence: CL)
  Receive Date: 20140120
  Receipt Date: 20140120
  Transmission Date: 20141002
  Serious: Yes (Other)
  Sender: FDA-Public Use
  Company Number: CL-ROCHE-1334827

PATIENT
  Age: 48 Year
  Sex: Female
  Weight: 48.5 kg

DRUGS (2)
  1. XELODA [Suspect]
     Indication: RECTAL CANCER
     Dosage: 14-DAY-CYCLE
     Route: 048
     Dates: start: 20130917, end: 20140114
  2. OXALIPLATIN [Suspect]
     Indication: RECTAL CANCER
     Route: 042
     Dates: start: 20130917, end: 20140114

REACTIONS (2)
  - Incisional hernia [Not Recovered/Not Resolved]
  - Anorectal disorder [Not Recovered/Not Resolved]
